FAERS Safety Report 21329847 (Version 1)
Quarter: 2022Q3

REPORT INFORMATION
  Report Type: Spontaneous
  Country: FR (occurrence: FR)
  Receive Date: 20220913
  Receipt Date: 20220913
  Transmission Date: 20221026
  Serious: Yes (Hospitalization)
  Sender: FDA-Public Use
  Company Number: None

PATIENT
  Age: 83 Year
  Sex: Female

DRUGS (6)
  1. TRAMADOL HYDROCHLORIDE [Suspect]
     Active Substance: TRAMADOL HYDROCHLORIDE
     Indication: Pain
     Dosage: START DATE: NOT ASKED
     Dates: end: 20220711
  2. SERTRALINE HYDROCHLORIDE [Suspect]
     Active Substance: SERTRALINE HYDROCHLORIDE
     Indication: Depression
     Dosage: START DATE: NOT ASKED
     Dates: end: 20220711
  3. LORMETAZEPAM [Suspect]
     Active Substance: LORMETAZEPAM
     Indication: Agitation
     Dosage: DURATION-12 DAYS
     Dates: start: 20220629, end: 20220711
  4. TIAPRIDE HYDROCHLORIDE [Suspect]
     Active Substance: TIAPRIDE HYDROCHLORIDE
     Indication: Agitation
     Dosage: DURATION-17 DAYS
     Dates: start: 20220624, end: 20220711
  5. ACUPAN [Suspect]
     Active Substance: NEFOPAM HYDROCHLORIDE
     Indication: Pain
     Dosage: START DATE: NOT ASKED
     Dates: end: 20220711
  6. RISPERDAL [Suspect]
     Active Substance: RISPERIDONE
     Indication: Agitation
     Dosage: DURATION 17 DAYS
     Dates: start: 20220624, end: 20220711

REACTIONS (2)
  - Confusional state [Recovered/Resolved]
  - Fall [Recovered/Resolved]

NARRATIVE: CASE EVENT DATE: 20220711
